FAERS Safety Report 6073023-7 (Version None)
Quarter: 2009Q1

REPORT INFORMATION
  Report Type: 
  Country: None (occurrence: None)
  Receive Date: 20090209
  Receipt Date: 20090209
  Transmission Date: 20090719
  Serious: Yes (Other)
  Sender: FDA-Public Use
  Company Number: None

PATIENT
  Sex: Female
  Weight: 48.0813 kg

DRUGS (2)
  1. FLUOXETINE HCL 20MG SIDM [Suspect]
     Indication: ANXIETY
     Dosage: I CAPSULE DAILY BUCCAL
     Route: 002
     Dates: start: 20081001, end: 20090109
  2. FLUOXETINE HCL 20MG SIDM [Suspect]
     Indication: ASPERGER'S DISORDER
     Dosage: I CAPSULE DAILY BUCCAL
     Route: 002
     Dates: start: 20081001, end: 20090109

REACTIONS (1)
  - HALLUCINATION [None]
